FAERS Safety Report 8362706-1 (Version None)
Quarter: 2012Q2

REPORT INFORMATION
  Report Type: 
  Country: None (occurrence: None)
  Receive Date: 20120514
  Receipt Date: 20120503
  Transmission Date: 20120825
  Serious: Yes (Hospitalization, Other)
  Sender: FDA-Public Use
  Company Number: 2012SP023799

PATIENT
  Sex: Female

DRUGS (3)
  1. PEG-INTRON [Suspect]
     Indication: HEPATITIS C
     Dates: start: 20120207
  2. RIBAVIRIN [Suspect]
     Indication: HEPATITIS C
     Dates: start: 20120207
  3. AMITRIPTYLINE HCL [Concomitant]

REACTIONS (6)
  - FATIGUE [None]
  - BONE PAIN [None]
  - MYALGIA [None]
  - INSOMNIA [None]
  - ABDOMINAL PAIN [None]
  - ILL-DEFINED DISORDER [None]
